FAERS Safety Report 24535577 (Version 1)
Quarter: 2024Q4

REPORT INFORMATION
  Report Type: Spontaneous
  Country: US (occurrence: US)
  Receive Date: 20241022
  Receipt Date: 20241022
  Transmission Date: 20250115
  Serious: Yes (Hospitalization)
  Sender: BRISTOL-MYERS SQUIBB COMPANY
  Company Number: US-BRISTOL-MYERS SQUIBB COMPANY-2024-163384

PATIENT
  Age: 44 Year
  Sex: Female

DRUGS (1)
  1. POMALYST [Suspect]
     Active Substance: POMALIDOMIDE
     Indication: Amyloidosis
     Dosage: FREQUENCY 21
     Dates: start: 202310

REACTIONS (4)
  - Dyspnoea [Unknown]
  - Dizziness [Unknown]
  - Labile blood pressure [Unknown]
  - Off label use [Unknown]
